FAERS Safety Report 9543287 (Version 2)
Quarter: 2013Q3

REPORT INFORMATION
  Report Type: Spontaneous
  Country: PL (occurrence: PL)
  Receive Date: 20130923
  Receipt Date: 20130930
  Transmission Date: 20140515
  Serious: Yes (Hospitalization)
  Sender: FDA-Public Use
  Company Number: PL-ROCHE-1279566

PATIENT
  Age: 53 Year
  Sex: Male

DRUGS (6)
  1. XOLAIR [Suspect]
     Indication: ASTHMA
     Route: 058
     Dates: start: 20130708
  2. ATROVENT [Concomitant]
  3. FOSTEX [Concomitant]
  4. MONKASTA [Concomitant]
  5. THEOSPIREX [Concomitant]
  6. BISOCARD [Concomitant]

REACTIONS (1)
  - Autoimmune thyroiditis [Recovering/Resolving]
